FAERS Safety Report 16216543 (Version 2)
Quarter: 2020Q1

REPORT INFORMATION
  Report Type: Spontaneous
  Country: GB (occurrence: GB)
  Receive Date: 20190419
  Receipt Date: 20200120
  Transmission Date: 20200409
  Serious: Yes (Other)
  Sender: FDA-Public Use
  Company Number: GB-AUROBINDO-AUR-APL-2019-020888

PATIENT
  Age: 49 Year
  Sex: Male
  Weight: 81 kg

DRUGS (2)
  1. BETAHISTINE [Concomitant]
     Active Substance: BETAHISTINE
     Indication: PRODUCT USED FOR UNKNOWN INDICATION
     Dosage: UNK
     Route: 065
  2. CLARITHROMYCIN. [Suspect]
     Active Substance: CLARITHROMYCIN
     Indication: BURSITIS INFECTIVE
     Dosage: 1000 MILLIGRAM, ONCE A DAY
     Route: 048
     Dates: start: 20190313, end: 20190315

REACTIONS (13)
  - Vasculitis [Unknown]
  - Photopsia [Unknown]
  - Visual field defect [Unknown]
  - Visual impairment [Recovering/Resolving]
  - Retinal detachment [Unknown]
  - Vitreous detachment [Unknown]
  - Vision blurred [Unknown]
  - Eye disorder [Recovering/Resolving]
  - Eye haemorrhage [Unknown]
  - Blindness [Unknown]
  - Vitreous floaters [Unknown]
  - Diplopia [Unknown]
  - Headache [Unknown]

NARRATIVE: CASE EVENT DATE: 20190314
